FAERS Safety Report 9615813 (Version 1)
Quarter: 2013Q4

REPORT INFORMATION
  Report Type: Spontaneous
  Country: US (occurrence: US)
  Receive Date: 20131011
  Receipt Date: 20131011
  Transmission Date: 20140711
  Serious: No
  Sender: FDA-Public Use
  Company Number: US-PURDUE-USA-2013-0099111

PATIENT
  Sex: Male

DRUGS (1)
  1. BUTRANS [Suspect]
     Indication: PRODUCT USED FOR UNKNOWN INDICATION
     Dosage: 20 MCG/HR, UNK
     Route: 062

REACTIONS (8)
  - Drug withdrawal syndrome [Unknown]
  - Mental impairment [Unknown]
  - Application site scab [Unknown]
  - Pain [Unknown]
  - Mood altered [Unknown]
  - Drug effect decreased [Unknown]
  - Asthenia [Unknown]
  - Product adhesion issue [Unknown]
